FAERS Safety Report 5019706-9 (Version None)
Quarter: 2006Q2

REPORT INFORMATION
  Report Type: 
  Country: None (occurrence: None)
  Receive Date: 20060601
  Receipt Date: 20060516
  Transmission Date: 20061013
  Serious: Yes (Hospitalization)
  Sender: FDA-Public Use
  Company Number: S06-GER-01995-01

PATIENT
  Age: 14 Year
  Sex: Female

DRUGS (2)
  1. CITALOPRAM HYDROBROMIDE [Suspect]
     Dosage: 400 MG ONCE
  2. CITALOPRAM HYDROBROMIDE [Suspect]

REACTIONS (3)
  - CONVULSION [None]
  - DRUG TOXICITY [None]
  - OVERDOSE [None]
